FAERS Safety Report 7794437-0 (Version None)
Quarter: 2011Q4

REPORT INFORMATION
  Report Type: 
  Country: None (occurrence: None)
  Receive Date: 20111004
  Receipt Date: 20111004
  Transmission Date: 20120403
  Serious: Yes (Death, Life-Threatening, Hospitalization)
  Sender: FDA-Public Use
  Company Number: None

PATIENT
  Age: 45 Year
  Sex: Male

DRUGS (10)
  1. INTERLEUKIN [Concomitant]
  2. PREDNISONE [Concomitant]
  3. MULTI-VITAMIN [Concomitant]
  4. LEVOTHYROXINE [Concomitant]
  5. INTERFERON [Concomitant]
  6. OMEGA-3 POLYUNSATURATED ACIDS [Concomitant]
  7. OXYCODONE/ACETAMINOPHEN [Concomitant]
  8. YERVOY [Suspect]
     Indication: METASTATIC MALIGNANT MELANOMA
     Dosage: NOT REPORTED
     Route: 042
  9. FUROSEMIDE [Concomitant]
  10. CHOLECALCIFEROL [Concomitant]

REACTIONS (12)
  - COUGH [None]
  - CARDIOMYOPATHY [None]
  - ACUTE RESPIRATORY FAILURE [None]
  - BRADYCARDIA [None]
  - RENAL FAILURE ACUTE [None]
  - COAGULOPATHY [None]
  - ACUTE HEPATIC FAILURE [None]
  - PULSELESS ELECTRICAL ACTIVITY [None]
  - HAEMOPTYSIS [None]
  - DYSPNOEA [None]
  - CARDIOGENIC SHOCK [None]
  - GENERAL PHYSICAL HEALTH DETERIORATION [None]
